FAERS Safety Report 5764777-5 (Version None)
Quarter: 2008Q2

REPORT INFORMATION
  Report Type: 
  Country: None (occurrence: None)
  Receive Date: 20080611
  Receipt Date: 20080604
  Transmission Date: 20081010
  Serious: Yes (Death, Hospitalization, Other)
  Sender: FDA-Public Use
  Company Number: PHHO2008US05919

PATIENT
  Age: 70 Year
  Sex: Male

DRUGS (1)
  1. ALDESLEUKIN C-ALDE+INJ [Suspect]
     Indication: METASTATIC RENAL CELL CARCINOMA
     Dates: start: 20080428

REACTIONS (18)
  - ACIDOSIS [None]
  - ACUTE RESPIRATORY DISTRESS SYNDROME [None]
  - ANAPHYLACTIC SHOCK [None]
  - ANOXIC ENCEPHALOPATHY [None]
  - ARRHYTHMIA SUPRAVENTRICULAR [None]
  - ATRIAL FIBRILLATION [None]
  - CARDIAC ARREST [None]
  - CARDIO-RESPIRATORY ARREST [None]
  - CIRCULATORY COLLAPSE [None]
  - PAIN IN EXTREMITY [None]
  - RENAL FAILURE ACUTE [None]
  - RESUSCITATION [None]
  - SHOCK [None]
  - SOMNOLENCE [None]
  - THROMBOCYTOPENIA [None]
  - TREMOR [None]
  - UNRESPONSIVE TO STIMULI [None]
  - WHITE BLOOD CELL COUNT INCREASED [None]
